FAERS Safety Report 23967309 (Version 1)
Quarter: 2024Q2

REPORT INFORMATION
  Report Type: Spontaneous
  Country: DE (occurrence: DE)
  Receive Date: 20240612
  Receipt Date: 20240612
  Transmission Date: 20240716
  Serious: Yes (Life-Threatening, Hospitalization, Other)
  Sender: FDA-Public Use
  Company Number: DE-SAMSUNG BIOEPIS-SB-2024-17784

PATIENT
  Age: 62 Year
  Sex: Male
  Weight: 109.5 kg

DRUGS (6)
  1. TRASTUZUMAB [Suspect]
     Active Substance: TRASTUZUMAB
     Indication: Gastrooesophageal cancer
     Dosage: 6MG/KG. 660MG GIVEN BEFORE ONSET OF EVENT
     Route: 042
     Dates: start: 20240220
  2. PEMBROLIZUMAB [Suspect]
     Active Substance: PEMBROLIZUMAB
     Indication: Gastrooesophageal cancer
     Dosage: 200MG
     Route: 042
     Dates: start: 20240220
  3. OXALIPLATIN [Suspect]
     Active Substance: OXALIPLATIN
     Indication: Gastrooesophageal cancer
     Dosage: 85MG/M2. 144MG GIVEN BEFORE EVENT ONSET.
     Route: 042
     Dates: start: 20240220
  4. LEUCOVORIN [Suspect]
     Active Substance: LEUCOVORIN\LEUCOVORIN CALCIUM
     Indication: Gastrooesophageal cancer
     Dosage: 200MG/M2. 454MG GIVE BEFORE EVENT ONSET.
     Route: 042
     Dates: start: 20240220
  5. FLUOROURACIL [Suspect]
     Active Substance: FLUOROURACIL
     Indication: Gastrooesophageal cancer
     Dosage: 2600MG/M2. 4426MG GIVEN BEFORE EVENT ONSET.
     Route: 042
     Dates: start: 20240220
  6. DOCETAXEL [Suspect]
     Active Substance: DOCETAXEL\DOCETAXEL ANHYDROUS
     Indication: Gastrooesophageal cancer
     Dosage: 50MG/M2. 85MG GIVEN BEFORE EVENT ONSET.
     Route: 042
     Dates: start: 20240220

REACTIONS (3)
  - Gastrointestinal anastomotic leak [Recovering/Resolving]
  - Abdominal sepsis [Unknown]
  - Atrial fibrillation [Unknown]

NARRATIVE: CASE EVENT DATE: 20240515
